FAERS Safety Report 7903626-3 (Version None)
Quarter: 2011Q4

REPORT INFORMATION
  Report Type: 
  Country: None (occurrence: None)
  Receive Date: 20111107
  Receipt Date: 20111025
  Transmission Date: 20120403
  Serious: Yes (Hospitalization)
  Sender: FDA-Public Use
  Company Number: 1082115

PATIENT
  Sex: Female

DRUGS (3)
  1. DEXMEDETOMIDINE HYDROCHLORIDE [Suspect]
     Indication: SEDATION
     Dosage: INTRAVENOUS DRIP
     Route: 041
  2. FENTANYL [Concomitant]
  3. (CALCIUM /00060701/) [Concomitant]

REACTIONS (4)
  - SWELLING [None]
  - INJECTION SITE EXTRAVASATION [None]
  - BLISTER [None]
  - ERYTHEMA [None]
